FAERS Safety Report 25703964 (Version 1)
Quarter: 2025Q3

REPORT INFORMATION
  Report Type: Report from Study
  Country: BR (occurrence: BR)
  Receive Date: 20250820
  Receipt Date: 20250820
  Transmission Date: 20251020
  Serious: Yes (Hospitalization, Other)
  Sender: ROCHE
  Company Number: BR-ROCHE-10000361664

PATIENT
  Age: 61 Year
  Sex: Male
  Weight: 110 kg

DRUGS (2)
  1. PULMOZYME [Suspect]
     Active Substance: DORNASE ALFA
     Indication: Cystic fibrosis
     Route: 065
  2. PANCREATIN [Concomitant]
     Active Substance: PANCRELIPASE
     Indication: Cystic fibrosis

REACTIONS (9)
  - Loss of consciousness [Recovering/Resolving]
  - Pneumonia bacterial [Unknown]
  - Memory impairment [Not Recovered/Not Resolved]
  - Limb injury [Unknown]
  - Weight loss poor [Unknown]
  - Fall [Unknown]
  - Asthma [Recovering/Resolving]
  - Spinal fracture [Unknown]
  - Rib fracture [Unknown]

NARRATIVE: CASE EVENT DATE: 20250101
